FAERS Safety Report 24111700 (Version 3)
Quarter: 2025Q3

REPORT INFORMATION
  Report Type: Report from Study
  Country: MX (occurrence: MX)
  Receive Date: 20240718
  Receipt Date: 20250902
  Transmission Date: 20251020
  Serious: Yes (Life-Threatening, Hospitalization, Other)
  Sender: NOVARTIS
  Company Number: MX-002147023-NVSC2024MX043860

PATIENT
  Age: 34 Year
  Sex: Female
  Weight: 69 kg

DRUGS (6)
  1. TASIGNA [Suspect]
     Active Substance: NILOTINIB
     Indication: Chronic myeloid leukaemia
     Dosage: 2 DOSAGE FORM, Q12H
     Route: 048
     Dates: start: 20240105, end: 20240208
  2. TASIGNA [Suspect]
     Active Substance: NILOTINIB
     Dosage: 1 DOSAGE FORM, Q12H
     Route: 048
     Dates: start: 202404, end: 202405
  3. TASIGNA [Suspect]
     Active Substance: NILOTINIB
     Dosage: 2 CAPSULES IN THE MORNING AND 1 CAPSULE AT NIGHT (FOR 2 WEEKS)
     Route: 048
     Dates: start: 202405, end: 20240614
  4. TASIGNA [Suspect]
     Active Substance: NILOTINIB
     Dosage: 2 DOSAGE FORM, Q12H
     Route: 065
     Dates: start: 20250105
  5. TASIGNA [Suspect]
     Active Substance: NILOTINIB
     Route: 048
     Dates: end: 20250207
  6. TASIGNA [Suspect]
     Active Substance: NILOTINIB
     Dosage: 3 DOSAGE FORM, QD (3 X 200MG)
     Route: 048
     Dates: start: 202501, end: 20250812

REACTIONS (14)
  - Platelet count decreased [Not Recovered/Not Resolved]
  - White blood cell count decreased [Not Recovered/Not Resolved]
  - Neuropathy peripheral [Not Recovered/Not Resolved]
  - Discouragement [Recovering/Resolving]
  - Toxicity to various agents [Not Recovered/Not Resolved]
  - Haematoma [Recovered/Resolved]
  - Haemoglobin decreased [Not Recovered/Not Resolved]
  - Depressed mood [Recovering/Resolving]
  - Contusion [Recovering/Resolving]
  - Off label use [Unknown]
  - C-reactive protein increased [Unknown]
  - Muscle spasms [Not Recovered/Not Resolved]
  - Headache [Not Recovered/Not Resolved]
  - Arthralgia [Not Recovered/Not Resolved]

NARRATIVE: CASE EVENT DATE: 20240201
